FAERS Safety Report 10175196 (Version 1)
Quarter: 2014Q2

REPORT INFORMATION
  Report Type: Spontaneous
  Country: US (occurrence: US)
  Receive Date: 20140515
  Receipt Date: 20140515
  Transmission Date: 20141212
  Serious: No
  Sender: FDA-Public Use
  Company Number: US-VIVUS-2014V1000089

PATIENT
  Age: 64 Year
  Sex: Male
  Weight: 182.96 kg

DRUGS (13)
  1. QSYMIA 3.75MG/23MG [Suspect]
     Indication: WEIGHT DECREASED
     Route: 048
     Dates: start: 20140215
  2. STELERA [Concomitant]
     Indication: PSORIASIS
     Route: 058
     Dates: start: 2012
  3. APIDRA INSULIN PUMP [Concomitant]
     Indication: DIABETES MELLITUS
     Dosage: 4 UNITS/HOUR
     Route: 058
     Dates: start: 2009
  4. FUROSEMIDE [Concomitant]
     Indication: DIURETIC THERAPY
     Route: 048
  5. GENERIC SYNTHROID [Concomitant]
     Indication: PRODUCT USED FOR UNKNOWN INDICATION
     Route: 048
  6. ATORVASTATIN [Concomitant]
     Indication: BLOOD CHOLESTEROL INCREASED
     Route: 048
  7. PANTOPRAZOLE [Concomitant]
     Indication: PRODUCT USED FOR UNKNOWN INDICATION
     Route: 048
  8. GENERIC ACTOS [Concomitant]
     Indication: DIABETES MELLITUS
     Route: 048
  9. AMLODIPINE BESYLATE [Concomitant]
     Indication: HYPERTENSION
     Route: 048
  10. FENOFIBRATE ACID [Concomitant]
     Indication: PRODUCT USED FOR UNKNOWN INDICATION
     Route: 048
  11. RANEXA ER [Concomitant]
     Indication: ANGINA PECTORIS
     Route: 048
     Dates: start: 201312
  12. IRBESARTAN HCTZ [Concomitant]
     Indication: HYPERTENSION
     Dosage: 300MG/12.5MG
     Route: 048
  13. METOPROLOL [Concomitant]
     Indication: CARDIAC DISORDER
     Route: 048

REACTIONS (2)
  - Blood glucose increased [Not Recovered/Not Resolved]
  - Nausea [Recovered/Resolved]
